FAERS Safety Report 17581726 (Version 1)
Quarter: 2020Q1

REPORT INFORMATION
  Report Type: Spontaneous
  Country: AR (occurrence: AR)
  Receive Date: 20200325
  Receipt Date: 20200325
  Transmission Date: 20200409
  Serious: Yes (Other)
  Sender: FDA-Public Use
  Company Number: AR-SHIRE-AR202010736

PATIENT

DRUGS (1)
  1. HUMAN NORMAL IMMUNOGLOBULIN [Suspect]
     Active Substance: HUMAN IMMUNOGLOBULIN G
     Indication: MYASTHENIA GRAVIS
     Dosage: UNK
     Route: 042

REACTIONS (9)
  - Oculogyric crisis [Unknown]
  - Product use complaint [Unknown]
  - Haematoma [Unknown]
  - Respiratory disorder [Unknown]
  - Vein disorder [Unknown]
  - Intentional product use issue [Unknown]
  - Thymoma malignant recurrent [Unknown]
  - Dysphagia [Unknown]
  - Product prescribing issue [Unknown]

NARRATIVE: CASE EVENT DATE: 2016
